FAERS Safety Report 24604320 (Version 1)
Quarter: 2024Q4

REPORT INFORMATION
  Report Type: Spontaneous
  Country: US (occurrence: US)
  Receive Date: 20241111
  Receipt Date: 20241111
  Transmission Date: 20250115
  Serious: No
  Sender: PFIZER
  Company Number: US-PFIZER INC-202400295872

PATIENT
  Age: 84 Year
  Sex: Female
  Weight: 68.04 kg

DRUGS (3)
  1. PROTONIX [Suspect]
     Active Substance: PANTOPRAZOLE SODIUM
     Indication: Gastrooesophageal reflux disease
     Dosage: I TAKE, IT IS A 40. BETWEEN 40 AND 80 MILLIGRAMS A DAY/ONE TABLET OR TWO
  2. PROTONIX [Suspect]
     Active Substance: PANTOPRAZOLE SODIUM
     Indication: Diverticulitis
     Dosage: IT IS A 40. BETWEEN 40 AND 80 MILLIGRAMS A DAY/ONE TABLET OR TWO
  3. ASPIRIN [Concomitant]
     Active Substance: ASPIRIN
     Indication: Vascular device user
     Dosage: 12.5 MILLIGRAMS, ONCE A DAY

REACTIONS (4)
  - Chest discomfort [Unknown]
  - Dyspnoea [Unknown]
  - Hypersensitivity [Unknown]
  - Manufacturing production issue [Unknown]
